FAERS Safety Report 16764509 (Version 2)
Quarter: 2019Q3

REPORT INFORMATION
  Report Type: Spontaneous
  Country: JP (occurrence: JP)
  Receive Date: 20190902
  Receipt Date: 20190906
  Transmission Date: 20191005
  Serious: Yes (Death, Life-Threatening, Hospitalization, Other)
  Sender: FDA-Public Use
  Company Number: JP-009507513-1908JPN003018J

PATIENT
  Sex: Female

DRUGS (1)
  1. KEYTRUDA [Suspect]
     Active Substance: PEMBROLIZUMAB
     Indication: CERVIX CARCINOMA
     Dosage: 200 MILLIGRAM, Q3W
     Route: 041
     Dates: start: 2019, end: 2019

REACTIONS (5)
  - Pneumonia aspiration [Fatal]
  - Disseminated intravascular coagulation [Fatal]
  - Infectious pleural effusion [Unknown]
  - Colitis [Recovering/Resolving]
  - Mechanical ileus [Recovered/Resolved]

NARRATIVE: CASE EVENT DATE: 201908
